FAERS Safety Report 11688882 (Version 1)
Quarter: 2015Q4

REPORT INFORMATION
  Report Type: Spontaneous
  Country: US (occurrence: None)
  Receive Date: 20151030
  Receipt Date: 20151030
  Transmission Date: 20160304
  Serious: Yes (Hospitalization)
  Sender: FDA-Public Use
  Company Number: None

PATIENT
  Age: 63 Year
  Sex: Male
  Weight: 138.4 kg

DRUGS (1)
  1. VELCADE [Suspect]
     Active Substance: BORTEZOMIB
     Dates: end: 20150910

REACTIONS (6)
  - Aspartate aminotransferase increased [None]
  - Blood alkaline phosphatase increased [None]
  - Atelectasis [None]
  - Alanine aminotransferase increased [None]
  - Syncope [None]
  - Blood sodium decreased [None]

NARRATIVE: CASE EVENT DATE: 20151026
